FAERS Safety Report 9405748 (Version 1)
Quarter: 2013Q3

REPORT INFORMATION
  Report Type: Spontaneous
  Country: US (occurrence: US)
  Receive Date: 20130717
  Receipt Date: 20130717
  Transmission Date: 20140515
  Serious: Yes (Death, Hospitalization)
  Sender: FDA-Public Use
  Company Number: US-GLAXOSMITHKLINE-A0806132A

PATIENT
  Age: 78 Year
  Sex: Female
  Weight: 114.1 kg

DRUGS (1)
  1. AVANDIA [Suspect]
     Indication: DIABETES MELLITUS
     Dosage: 4MG PER DAY
     Route: 048
     Dates: start: 20010403, end: 20090406

REACTIONS (4)
  - Death [Fatal]
  - Cardiac failure congestive [Unknown]
  - Ill-defined disorder [Unknown]
  - Renal failure chronic [Unknown]
